FAERS Safety Report 9998249 (Version 2)
Quarter: 2014Q1

REPORT INFORMATION
  Report Type: Spontaneous
  Country: US (occurrence: US)
  Receive Date: 20140311
  Receipt Date: 20140311
  Transmission Date: 20141002
  Serious: Yes (Disabling)
  Sender: FDA-Public Use
  Company Number: US-GE HEALTHCARE MEDICAL DIAGNOSTICS-OSCN-PR-0709S-0366

PATIENT
  Age: 43 Year
  Sex: Male

DRUGS (7)
  1. OMNISCAN [Suspect]
     Indication: RENAL FAILURE ACUTE
     Route: 065
     Dates: start: 20050205, end: 20050205
  2. OMNISCAN [Suspect]
     Indication: MENTAL STATUS CHANGES
     Route: 042
     Dates: start: 20050209, end: 20050209
  3. OMNISCAN [Suspect]
     Indication: LIVER FUNCTION TEST ABNORMAL
     Route: 042
     Dates: start: 20050210, end: 20050210
  4. OMNISCAN [Suspect]
     Indication: OESOPHAGEAL MASS
     Route: 042
     Dates: start: 20050213, end: 20050213
  5. EPOGEN [Concomitant]
     Indication: PRODUCT USED FOR UNKNOWN INDICATION
  6. ZEMPLAR [Concomitant]
     Indication: PRODUCT USED FOR UNKNOWN INDICATION
  7. CRESTOR [Concomitant]
     Indication: HYPERLIPIDAEMIA

REACTIONS (1)
  - Nephrogenic systemic fibrosis [Not Recovered/Not Resolved]
